FAERS Safety Report 24879719 (Version 1)
Quarter: 2025Q1

REPORT INFORMATION
  Report Type: Spontaneous
  Country: CN (occurrence: CN)
  Receive Date: 20250123
  Receipt Date: 20250123
  Transmission Date: 20250408
  Serious: Yes (Other)
  Sender: MERCK
  Company Number: CN-009507513-2501CHN005964

PATIENT
  Age: 74 Year
  Sex: Male
  Weight: 71 kg

DRUGS (2)
  1. INVANZ [Suspect]
     Active Substance: ERTAPENEM SODIUM
     Indication: Anti-infective therapy
     Dosage: 1 GRAM, QD
     Route: 041
     Dates: start: 20241228, end: 20250103
  2. PIPERACILLIN AND TAZOBACTAM [Concomitant]
     Active Substance: PIPERACILLIN SODIUM\TAZOBACTAM SODIUM
     Indication: Anti-infective therapy
     Dosage: 4.5 GRAM, Q12H
     Dates: start: 20241224, end: 20241228

REACTIONS (2)
  - Disorganised speech [Recovered/Resolved]
  - Agitation [Recovered/Resolved]

NARRATIVE: CASE EVENT DATE: 20250103
